FAERS Safety Report 26208357 (Version 1)
Quarter: 2025Q4

REPORT INFORMATION
  Report Type: Spontaneous
  Country: CA (occurrence: None)
  Receive Date: 20251227
  Receipt Date: 20251227
  Transmission Date: 20260118
  Serious: Yes (Disabling, Other)
  Sender: FDA-CTU
  Company Number: None

PATIENT
  Age: 58 Year
  Sex: Male
  Weight: 60.75 kg

DRUGS (10)
  1. ABILIFY [Suspect]
     Active Substance: ARIPIPRAZOLE
     Indication: Brain injury
     Dosage: OTHER QUANTITY : 1 TABLET(S);?FREQUENCY : 3 TIMES A DAY;
     Route: 048
  2. CLONAZEPAM [Suspect]
     Active Substance: CLONAZEPAM
  3. WELLBUTRIN XL [Suspect]
     Active Substance: BUPROPION HYDROCHLORIDE
  4. SEROQUEL [Suspect]
     Active Substance: QUETIAPINE FUMARATE
  5. TRAZODONE [Suspect]
     Active Substance: TRAZODONE HYDROCHLORIDE
  6. CIPRALEX [Suspect]
     Active Substance: ESCITALOPRAM OXALATE
  7. RISPERIDONE [Suspect]
     Active Substance: RISPERIDONE
  8. prosthetic leg [Concomitant]
  9. RAMIPRIL [Concomitant]
     Active Substance: RAMIPRIL
  10. FOLIC ACID [Concomitant]
     Active Substance: FOLIC ACID

REACTIONS (2)
  - Withdrawal syndrome [None]
  - Adverse drug reaction [None]

NARRATIVE: CASE EVENT DATE: 20220601
